FAERS Safety Report 25886288 (Version 1)
Quarter: 2025Q4

REPORT INFORMATION
  Report Type: Spontaneous
  Country: AR (occurrence: AR)
  Receive Date: 20251006
  Receipt Date: 20251006
  Transmission Date: 20260118
  Serious: Yes (Death, Other)
  Sender: BRISTOL-MYERS SQUIBB COMPANY
  Company Number: AR-BRISTOL-MYERS SQUIBB COMPANY-2025-136114

PATIENT
  Age: 92 Year
  Sex: Male

DRUGS (1)
  1. ELIQUIS [Suspect]
     Active Substance: APIXABAN
     Indication: Product used for unknown indication
     Dates: start: 20251001, end: 20251002

REACTIONS (1)
  - Death [Fatal]

NARRATIVE: CASE EVENT DATE: 20251002
